FAERS Safety Report 12884030 (Version 3)
Quarter: 2017Q4

REPORT INFORMATION
  Report Type: Spontaneous
  Country: US (occurrence: US)
  Receive Date: 20161026
  Receipt Date: 20171123
  Transmission Date: 20180320
  Serious: Yes (Other)
  Sender: FDA-Public Use
  Company Number: US-UCBSA-2016040435

PATIENT
  Age: 60 Year
  Sex: Female

DRUGS (4)
  1. ATIVAN [Concomitant]
     Active Substance: LORAZEPAM
     Indication: PRODUCT USED FOR UNKNOWN INDICATION
  2. CIMZIA [Suspect]
     Active Substance: CERTOLIZUMAB PEGOL
     Indication: RHEUMATOID ARTHRITIS
     Dosage: 200 MG, EV 4 WEEKS
     Route: 058
     Dates: start: 20160722, end: 2016
  3. CIMZIA [Suspect]
     Active Substance: CERTOLIZUMAB PEGOL
     Dosage: 400 MG, EV 4 WEEKS
     Route: 058
     Dates: start: 20161101
  4. DIAZEPAM. [Concomitant]
     Active Substance: DIAZEPAM
     Indication: PRODUCT USED FOR UNKNOWN INDICATION

REACTIONS (8)
  - Rash generalised [Unknown]
  - Back pain [Unknown]
  - Blood glucose increased [Unknown]
  - Diarrhoea [Unknown]
  - Agitation [Unknown]
  - Skin papilloma [Unknown]
  - Urinary tract infection [Unknown]
  - Delusion [Unknown]

NARRATIVE: CASE EVENT DATE: 2016
